FAERS Safety Report 15505826 (Version 1)
Quarter: 2018Q4

REPORT INFORMATION
  Report Type: Spontaneous
  Country: US (occurrence: US)
  Receive Date: 20181016
  Receipt Date: 20181016
  Transmission Date: 20190205
  Serious: No
  Sender: FDA-Public Use
  Company Number: US-PFIZER INC-2018403631

PATIENT
  Age: 48 Year
  Sex: Female
  Weight: 70.31 kg

DRUGS (2)
  1. PREMARIN [Suspect]
     Active Substance: ESTROGENS, CONJUGATED
     Indication: VULVOVAGINAL DRYNESS
     Dosage: 1 G, THREE TIMES A WEEK (MONDAY, WEDNESDAY, FRIDAY)
     Route: 067
     Dates: start: 201804
  2. PREMARIN [Suspect]
     Active Substance: ESTROGENS, CONJUGATED
     Dosage: UNK, 2X/WEEK
     Dates: start: 20181002

REACTIONS (3)
  - Insomnia [Unknown]
  - Nightmare [Unknown]
  - Headache [Not Recovered/Not Resolved]

NARRATIVE: CASE EVENT DATE: 2018
